FAERS Safety Report 8395417-7 (Version None)
Quarter: 2012Q2

REPORT INFORMATION
  Report Type: 
  Country: None (occurrence: None)
  Receive Date: 20120525
  Receipt Date: 20120525
  Transmission Date: 20120825
  Serious: Yes (Other)
  Sender: FDA-Public Use
  Company Number: None

PATIENT
  Age: 59 Year
  Sex: Female
  Weight: 58.9676 kg

DRUGS (1)
  1. LEVOFLOXACIN [Suspect]
     Indication: SINUSITIS
     Dosage: 750 MG ONE PILL DAILY 047
     Route: 048
     Dates: start: 20120320, end: 20120329

REACTIONS (6)
  - DYSSTASIA [None]
  - MYALGIA [None]
  - GAIT DISTURBANCE [None]
  - JOINT SWELLING [None]
  - LIGAMENT PAIN [None]
  - PAIN [None]
